FAERS Safety Report 15511384 (Version 1)
Quarter: 2018Q4

REPORT INFORMATION
  Report Type: Spontaneous
  Country: US (occurrence: US)
  Receive Date: 20181017
  Receipt Date: 20181017
  Transmission Date: 20190205
  Serious: Yes (Hospitalization)
  Sender: FDA-Public Use
  Company Number: None

PATIENT
  Sex: Female

DRUGS (1)
  1. STIMATE [Suspect]
     Active Substance: DESMOPRESSIN ACETATE
     Indication: HAEMORRHAGIC DISORDER
     Dosage: ?          OTHER FREQUENCY:2HRS PRIOR +QD3D;?
     Route: 045
     Dates: start: 20180816

REACTIONS (1)
  - Blood sodium decreased [None]
